FAERS Safety Report 8305376-0 (Version None)
Quarter: 2012Q2

REPORT INFORMATION
  Report Type: 
  Country: None (occurrence: None)
  Receive Date: 20120423
  Receipt Date: 20120417
  Transmission Date: 20120825
  Serious: Yes (Disabling)
  Sender: FDA-Public Use
  Company Number: US-SANOFI-AVENTIS-2012SA022193

PATIENT
  Age: 86 Year
  Sex: Female
  Weight: 70.45 kg

DRUGS (3)
  1. HUMALOG [Concomitant]
     Dosage: 4-5 UNITS
  2. LANTUS [Suspect]
     Indication: TYPE 2 DIABETES MELLITUS
     Dosage: DOSE:20 UNIT(S)
     Route: 058
     Dates: start: 20090101
  3. SOLOSTAR [Suspect]
     Indication: TYPE 2 DIABETES MELLITUS
     Dates: start: 20090101

REACTIONS (2)
  - ANKLE FRACTURE [None]
  - BLOOD GLUCOSE INCREASED [None]
